FAERS Safety Report 18331083 (Version 6)
Quarter: 2021Q2

REPORT INFORMATION
  Report Type: Spontaneous
  Country: US (occurrence: US)
  Receive Date: 20200930
  Receipt Date: 20210511
  Transmission Date: 20210717
  Serious: No
  Sender: FDA-Public Use
  Company Number: US-GLAXOSMITHKLINE-US2020AMR194765

PATIENT
  Age: 42 Year
  Sex: Female

DRUGS (5)
  1. ZEJULA [Suspect]
     Active Substance: NIRAPARIB
     Indication: OVARIAN CANCER
     Dosage: 300 MG, QD
     Dates: start: 20200915
  2. CYMBALTA [Concomitant]
     Active Substance: DULOXETINE HYDROCHLORIDE
     Indication: PRODUCT USED FOR UNKNOWN INDICATION
     Dosage: UNK
  3. ZEJULA [Suspect]
     Active Substance: NIRAPARIB
     Dosage: 300 MG, QD
     Route: 048
     Dates: start: 20200915
  4. ZEJULA [Suspect]
     Active Substance: NIRAPARIB
     Dosage: 300 MG, QD
     Route: 048
     Dates: start: 20210315, end: 20210412
  5. ZEJULA [Suspect]
     Active Substance: NIRAPARIB
     Dosage: 300 MG, QD
     Route: 048
     Dates: start: 20200913

REACTIONS (16)
  - Condition aggravated [Not Recovered/Not Resolved]
  - Anaemia [Unknown]
  - Heart rate increased [Recovered/Resolved]
  - Dyspepsia [Unknown]
  - Mass excision [Unknown]
  - Laboratory test abnormal [Unknown]
  - Product dose omission issue [Unknown]
  - Abdominal mass [Unknown]
  - Gastrointestinal disorder [Unknown]
  - Blood pressure increased [Unknown]
  - Nausea [Recovered/Resolved]
  - Scar [Unknown]
  - Abdominal discomfort [Unknown]
  - Carbohydrate antigen 125 increased [Not Recovered/Not Resolved]
  - Pruritus [Unknown]
  - Surgery [Unknown]

NARRATIVE: CASE EVENT DATE: 202101
